FAERS Safety Report 9876085 (Version 2)
Quarter: 2014Q1

REPORT INFORMATION
  Report Type: Other
  Country: US (occurrence: US)
  Receive Date: 20140206
  Receipt Date: 20140206
  Transmission Date: 20141002
  Serious: No
  Sender: FDA-Public Use
  Company Number: US-ACORDA-ACO_36164_2013

PATIENT
  Sex: Female
  Weight: 70.3 kg

DRUGS (8)
  1. AMPYRA [Suspect]
     Indication: GAIT DISTURBANCE
     Dosage: 10 MG, Q 12 HRS
     Route: 048
     Dates: start: 20130214, end: 201304
  2. AMPYRA [Suspect]
     Dosage: 10 MG, QD MORNING
     Route: 048
     Dates: start: 201304, end: 20130423
  3. AMPYRA [Suspect]
     Dosage: 10 MG, Q 12
     Route: 048
     Dates: start: 20130424, end: 2013
  4. AMPYRA [Suspect]
     Dosage: 10 MG QD
     Dates: start: 2013
  5. MULTIVITAMIN [Concomitant]
     Indication: PRODUCT USED FOR UNKNOWN INDICATION
     Dosage: UNK
  6. OTHER THERAPEUTIC PRODUCTS [Concomitant]
     Indication: PRODUCT USED FOR UNKNOWN INDICATION
     Dosage: UNK
  7. ACYCLOVIR [Concomitant]
     Indication: PRODUCT USED FOR UNKNOWN INDICATION
     Dosage: 200 MG, UNK
  8. TRIAMTERENE [Concomitant]
     Indication: OEDEMA
     Dosage: UNK, PRN

REACTIONS (6)
  - Muscle twitching [Not Recovered/Not Resolved]
  - Muscle spasms [Not Recovered/Not Resolved]
  - Chills [Not Recovered/Not Resolved]
  - Insomnia [Not Recovered/Not Resolved]
  - Dizziness [Recovered/Resolved]
  - Drug dose omission [Unknown]
